FAERS Safety Report 24706642 (Version 4)
Quarter: 2025Q2

REPORT INFORMATION
  Report Type: Report from Study
  Country: PH (occurrence: PH)
  Receive Date: 20241206
  Receipt Date: 20250519
  Transmission Date: 20250717
  Serious: Yes (Other)
  Sender: TAKEDA
  Company Number: PH-TAKEDA-2024TUS120649

PATIENT
  Sex: Female

DRUGS (1)
  1. VEDOLIZUMAB [Suspect]
     Active Substance: VEDOLIZUMAB
     Indication: Crohn^s disease

REACTIONS (4)
  - Crohn^s disease [Recovering/Resolving]
  - Anal inflammation [Recovering/Resolving]
  - Anal infection [Recovering/Resolving]
  - Loss of therapeutic response [Unknown]
